FAERS Safety Report 9881644 (Version 2)
Quarter: 2014Q1

REPORT INFORMATION
  Report Type: Spontaneous
  Country: NO (occurrence: NO)
  Receive Date: 20140207
  Receipt Date: 20140207
  Transmission Date: 20141002
  Serious: Yes (Hospitalization, Other)
  Sender: FDA-Public Use
  Company Number: NO-ACTAVIS-2014-00361

PATIENT
  Age: 33 Year
  Sex: Male

DRUGS (13)
  1. AMISULPRIDE (UNKNOWN) [Suspect]
     Indication: SCHIZOPHRENIA
     Dosage: 1 DDDS
     Route: 065
  2. AMISULPRIDE (UNKNOWN) [Suspect]
     Dosage: 2.5 DDDS
     Route: 065
  3. CLOZAPINE (UNKNOWN) [Suspect]
     Indication: SCHIZOPHRENIA
     Dosage: 1/4 OF DAILY DOSE AT BED TIME, WITHOUT CHANGING THE DAILY DOSE.
     Route: 065
  4. CLOZAPINE (UNKNOWN) [Suspect]
     Dosage: INCREASING DOSES UP TO 1.3 DDDS TWICE DAILY
     Route: 065
  5. TERBUTALINE [Suspect]
     Indication: SCHIZOPHRENIA
     Dosage: 0.33 DDD
     Route: 065
  6. OLANZAPINE (UNKNOWN) [Suspect]
     Indication: SCHIZOPHRENIA
     Dosage: 1.5 DDDS
     Route: 065
  7. OLANZAPINE (UNKNOWN) [Suspect]
     Dosage: 2.5 DDDS
     Route: 065
  8. BUPRENORPHINE (UNKNOWN) [Suspect]
     Indication: DRUG ABUSE
     Dosage: UNK
     Route: 065
  9. RISPERIDONE (UNKNOWN) [Suspect]
     Indication: SCHIZOPHRENIA
     Dosage: 0.8 DDDS
     Route: 065
  10. LEVOMEPROMAZINE [Suspect]
     Indication: SCHIZOPHRENIA
     Dosage: 0.5 DDDS
     Route: 065
  11. LEVOMEPROMAZINE [Suspect]
     Dosage: ON DEMAND
     Route: 065
  12. CHLORPROTHIXENE [Suspect]
     Indication: SCHIZOPHRENIA
     Dosage: 0.2 DDDS
     Route: 065
  13. PERPHENAZINE [Suspect]
     Indication: SCHIZOPHRENIA
     Dosage: 0.3 DDDS
     Route: 065

REACTIONS (4)
  - Priapism [Recovered/Resolved]
  - Spontaneous penile erection [Recovered/Resolved]
  - Myalgia [Unknown]
  - Hyperprolactinaemia [Unknown]
